FAERS Safety Report 10815895 (Version 1)
Quarter: 2015Q1

REPORT INFORMATION
  Report Type: Report from Study
  Country: US (occurrence: US)
  Receive Date: 20150218
  Receipt Date: 20150218
  Transmission Date: 20150721
  Serious: No
  Sender: FDA-Public Use
  Company Number: US-ABBVIE-14K-163-1283755-00

PATIENT
  Age: 55 Year
  Sex: Female
  Weight: 93.07 kg

DRUGS (2)
  1. LIPITOR [Concomitant]
     Active Substance: ATORVASTATIN CALCIUM
     Indication: BLOOD CHOLESTEROL INCREASED
  2. HUMIRA [Suspect]
     Active Substance: ADALIMUMAB
     Indication: PSORIASIS
     Route: 058
     Dates: start: 2004

REACTIONS (5)
  - Therapeutic response unexpected [Recovering/Resolving]
  - Therapeutic response unexpected [Unknown]
  - Urinary incontinence [Recovered/Resolved]
  - Nasopharyngitis [Recovering/Resolving]
  - Hypertonic bladder [Recovered/Resolved]

NARRATIVE: CASE EVENT DATE: 200403
